FAERS Safety Report 4925614-1 (Version None)
Quarter: 2006Q1

REPORT INFORMATION
  Report Type: 
  Country: None (occurrence: None)
  Receive Date: 20060228
  Receipt Date: 20050107
  Transmission Date: 20060701
  Serious: No
  Sender: FDA-Public Use
  Company Number: US-GLAXOSMITHKLINE-A0539843A

PATIENT
  Sex: Male

DRUGS (3)
  1. LAMICTAL [Suspect]
     Indication: EPILEPSY
     Dosage: 50MG TWICE PER DAY
     Route: 048
     Dates: start: 20041201
  2. DILANTIN [Concomitant]
     Dosage: 300MG PER DAY
  3. ACIPHEX [Concomitant]

REACTIONS (2)
  - INSOMNIA [None]
  - PRURITUS GENERALISED [None]
